FAERS Safety Report 10558930 (Version 6)
Quarter: 2014Q4

REPORT INFORMATION
  Report Type: Spontaneous
  Country: US (occurrence: US)
  Receive Date: 20141102
  Receipt Date: 20141211
  Transmission Date: 20150529
  Serious: Yes (Hospitalization, Other)
  Sender: FDA-Public Use
  Company Number: US-TAKEDA-2014TUS010311

PATIENT
  Age: 23 Year
  Sex: Male
  Weight: 55.78 kg

DRUGS (5)
  1. ENTYVIO [Suspect]
     Active Substance: VEDOLIZUMAB
     Indication: CROHN^S DISEASE
     Dosage: 300 MG, FIRST DOSE
     Route: 042
     Dates: start: 20141006
  2. PREDNISONE. [Suspect]
     Active Substance: PREDNISONE
     Dosage: 40 MG, QD
     Route: 048
     Dates: start: 20140903
  3. HUMIRA [Suspect]
     Active Substance: ADALIMUMAB
     Indication: CROHN^S DISEASE
     Dosage: 40 MG, QD
     Route: 058
     Dates: start: 2011, end: 20140928
  4. AZATHIOPRINE. [Suspect]
     Active Substance: AZATHIOPRINE
     Indication: CROHN^S DISEASE
     Dosage: 150 MG, UNK
     Route: 048
  5. ENTYVIO [Suspect]
     Active Substance: VEDOLIZUMAB
     Dosage: 300 MG, SECOND DOSE
     Route: 042
     Dates: start: 20141112

REACTIONS (2)
  - Hepatitis viral [Recovered/Resolved]
  - Herpes simplex [Recovered/Resolved]

NARRATIVE: CASE EVENT DATE: 20141007
